FAERS Safety Report 9862413 (Version 1)
Quarter: 2014Q1

REPORT INFORMATION
  Report Type: Spontaneous
  Country: US (occurrence: US)
  Receive Date: 20140203
  Receipt Date: 20140203
  Transmission Date: 20141002
  Serious: No
  Sender: FDA-Public Use
  Company Number: US-BAYER-2014-016861

PATIENT
  Age: 72 Year
  Sex: Female

DRUGS (8)
  1. ALEVE CAPLET [Suspect]
     Indication: ARTHRITIS
     Dosage: 1 DF, BID
     Route: 048
     Dates: start: 20131201
  2. SYNTHROID [Concomitant]
  3. DETROL [Concomitant]
  4. CALCIUM +VIT D [Concomitant]
  5. LIPITOR [Concomitant]
  6. METOPROLOL [Concomitant]
  7. ASPIRIN [Concomitant]
  8. LOSARTAN POTASSIUM W/HYDROCHLOROTHIAZIDE [Concomitant]

REACTIONS (1)
  - Incorrect drug administration duration [None]
